FAERS Safety Report 5199951-2 (Version None)
Quarter: 2007Q1

REPORT INFORMATION
  Report Type: 
  Country: None (occurrence: None)
  Receive Date: 20070103
  Receipt Date: 20061218
  Transmission Date: 20070707
  Serious: Yes (Other)
  Sender: FDA-Public Use
  Company Number: 226561

PATIENT
  Age: 57 Year
  Sex: Female
  Weight: 65.3 kg

DRUGS (9)
  1. RITUXIMAB (RITUXIMAB)CONC FOR SOLUTION FOR INFUSION [Suspect]
     Indication: RHEUMATOID ARTHRITIS
     Dosage: 1000 MG, DAYS 1 + 15, INTRAVENOUS
     Route: 042
     Dates: start: 20060104, end: 20060117
  2. PREDNISONE TAB [Suspect]
     Indication: RHEUMATOID ARTHRITIS
     Dosage: ORAL
     Route: 048
     Dates: start: 20060104, end: 20060119
  3. METHOTREXATE [Concomitant]
  4. CELEXA [Concomitant]
  5. METHYLPREDNISOLONE [Suspect]
     Indication: RHEUMATOID ARTHRITIS
     Dosage: 100 MG, DAYS 1 + 15, INTRAVENOUS
     Route: 042
     Dates: start: 20060104, end: 20060117
  6. LEVOXYL [Concomitant]
  7. TOPAMAX [Concomitant]
  8. CRESTOR [Concomitant]
  9. FOLATE (FOLATE SODIUM) [Concomitant]

REACTIONS (1)
  - MALIGNANT MELANOMA IN SITU [None]
